FAERS Safety Report 8102593-X (Version None)
Quarter: 2012Q1

REPORT INFORMATION
  Report Type: 
  Country: None (occurrence: None)
  Receive Date: 20120201
  Receipt Date: 20120124
  Transmission Date: 20120608
  Serious: Yes (Other)
  Sender: FDA-Public Use
  Company Number: US-SANOFI-AVENTIS-2012SA005848

PATIENT
  Age: 77 Year
  Sex: Male

DRUGS (4)
  1. ALL OTHER THERAPEUTIC PRODUCTS [Concomitant]
     Dosage: 25/100 MG 3 TABS THREE TIME DAY
  2. SOLOSTAR [Suspect]
     Indication: TYPE 2 DIABETES MELLITUS
     Dosage: TREATMENT WITH ONGOING FOR LANTUS 5-7 YEARS
  3. LANTUS [Suspect]
     Indication: TYPE 2 DIABETES MELLITUS
     Dosage: TREATMENT WITH ONGOING FOR LANTUS 5-7 YEARS DOSE:35 UNIT(S)
     Route: 058
  4. ANTIHYPERTENSIVES [Concomitant]
     Indication: BLOOD PRESSURE

REACTIONS (1)
  - PARKINSON'S DISEASE [None]
